FAERS Safety Report 18135385 (Version 2)
Quarter: 2020Q3

REPORT INFORMATION
  Report Type: Spontaneous
  Country: CA (occurrence: CA)
  Receive Date: 20200811
  Receipt Date: 20200813
  Transmission Date: 20201103
  Serious: Yes (Disabling, Other)
  Sender: FDA-Public Use
  Company Number: CA-PFIZER INC-2020289394

PATIENT
  Age: 48 Year
  Sex: Female

DRUGS (7)
  1. SULFASALAZINE. [Suspect]
     Active Substance: SULFASALAZINE
     Dosage: UNK
     Route: 065
  2. SULFASALAZINE. [Suspect]
     Active Substance: SULFASALAZINE
     Dosage: 1 G, 2X/DAY (2 TABS OF 500MG)
     Route: 065
  3. CELEBREX [Concomitant]
     Active Substance: CELECOXIB
     Dosage: 200 MG, 2X/DAY
     Route: 065
  4. CELEBREX [Concomitant]
     Active Substance: CELECOXIB
     Dosage: 200 MG, 1X/DAY (AS NEEDED)
  5. CELEBREX [Concomitant]
     Active Substance: CELECOXIB
     Dosage: 200 MG, DAILY
  6. CELEBREX [Concomitant]
     Active Substance: CELECOXIB
     Indication: ANALGESIC THERAPY
     Dosage: UNK, AS NEEDED
     Route: 065
  7. ACTEMRA [Concomitant]
     Active Substance: TOCILIZUMAB
     Dosage: UNK
     Dates: start: 201901, end: 202006

REACTIONS (15)
  - Renal impairment [Unknown]
  - Fluid retention [Unknown]
  - Lung disorder [Unknown]
  - Musculoskeletal stiffness [Unknown]
  - Muscular weakness [Unknown]
  - Therapeutic product effect incomplete [Unknown]
  - Pulmonary fibrosis [Unknown]
  - Chest wall mass [Unknown]
  - Arthralgia [Unknown]
  - Middle insomnia [Recovered/Resolved]
  - Condition aggravated [Unknown]
  - Lung diffusion test decreased [Unknown]
  - Oxygen saturation abnormal [Unknown]
  - Joint swelling [Unknown]
  - Pain in extremity [Unknown]
